FAERS Safety Report 17307998 (Version 2)
Quarter: 2020Q3

REPORT INFORMATION
  Report Type: Other
  Country: CA (occurrence: CA)
  Receive Date: 20200123
  Receipt Date: 20200717
  Transmission Date: 20201102
  Serious: Yes (Hospitalization, Other)
  Sender: FDA-Public Use
  Company Number: CA-ROCHE-2058070

PATIENT
  Age: 61 Year
  Sex: Female

DRUGS (40)
  1. RITUXAN [Suspect]
     Active Substance: RITUXIMAB
     Dosage: SINGLE DOSE
     Route: 042
     Dates: start: 20180520
  2. HYDROMORPHONE [Concomitant]
     Active Substance: HYDROMORPHONE
  3. SYNTHROID [Concomitant]
     Active Substance: LEVOTHYROXINE SODIUM
     Route: 048
  4. LINAGLIPTIN [Concomitant]
     Active Substance: LINAGLIPTIN
     Route: 048
  5. SEPTRA DS [Concomitant]
     Active Substance: SULFAMETHOXAZOLE\TRIMETHOPRIM
     Route: 048
  6. INSULIN [Concomitant]
     Active Substance: INSULIN NOS
  7. AZITHROMYCIN ANHYDROUS. [Concomitant]
     Active Substance: AZITHROMYCIN ANHYDROUS
  8. HUMALOG [Concomitant]
     Active Substance: INSULIN LISPRO
     Dosage: 6 UNITS
     Route: 058
  9. METRONIDAZOLE. [Concomitant]
     Active Substance: METRONIDAZOLE
  10. COVERSYL [Concomitant]
     Active Substance: PERINDOPRIL
  11. ASPIRIN. [Concomitant]
     Active Substance: ASPIRIN
     Route: 048
  12. ACETAMINOPHEN. [Concomitant]
     Active Substance: ACETAMINOPHEN
     Indication: PREMEDICATION
     Route: 048
     Dates: start: 20170208
  13. IMURAN [Concomitant]
     Active Substance: AZATHIOPRINE
  14. RITUXAN [Suspect]
     Active Substance: RITUXIMAB
     Dosage: ONE TIME, OR SINGLE DOSE INFUSIONS.
     Route: 042
     Dates: start: 20190716
  15. SALBUTAMOL [Concomitant]
     Active Substance: ALBUTEROL
  16. METOPROLOL. [Concomitant]
     Active Substance: METOPROLOL
     Route: 048
  17. DILAUDID [Concomitant]
     Active Substance: HYDROMORPHONE HYDROCHLORIDE
  18. DIPHENHYDRAMINE. [Concomitant]
     Active Substance: DIPHENHYDRAMINE
     Indication: PREMEDICATION
     Route: 048
     Dates: start: 20170208
  19. METHYLPREDNISOLONE. [Concomitant]
     Active Substance: METHYLPREDNISOLONE
     Indication: PREMEDICATION
     Route: 042
     Dates: start: 20170208
  20. VENTOLIN [Concomitant]
     Active Substance: ALBUTEROL SULFATE
  21. RITUXAN [Suspect]
     Active Substance: RITUXIMAB
     Indication: GRANULOMATOSIS WITH POLYANGIITIS
     Route: 042
     Dates: start: 20170208, end: 20181120
  22. PREDNISONE. [Suspect]
     Active Substance: PREDNISONE
     Indication: VASCULITIS
     Route: 048
     Dates: start: 20180904
  23. PREDNISONE. [Suspect]
     Active Substance: PREDNISONE
     Indication: GRANULOMATOSIS WITH POLYANGIITIS
  24. CIPROFLOXACIN. [Concomitant]
     Active Substance: CIPROFLOXACIN
  25. PANTOPRAZOLE [Concomitant]
     Active Substance: PANTOPRAZOLE
  26. LASIX [Concomitant]
     Active Substance: FUROSEMIDE
     Dosage: 4 DAYS A WEEK
     Route: 048
  27. AMLODIPINE [Concomitant]
     Active Substance: AMLODIPINE BESYLATE
     Route: 048
  28. MAGNESIUM OXIDE. [Concomitant]
     Active Substance: MAGNESIUM OXIDE
     Route: 048
  29. RITUXAN [Suspect]
     Active Substance: RITUXIMAB
     Dosage: SINGLE DOSE INFUSION
     Route: 042
     Dates: start: 20200116
  30. GLICLAZIDE [Concomitant]
     Active Substance: GLICLAZIDE
  31. PANTOPRAZOLE [Concomitant]
     Active Substance: PANTOPRAZOLE
     Route: 048
  32. CALCIUM CARBONATE. [Concomitant]
     Active Substance: CALCIUM CARBONATE
     Route: 048
  33. SULFATRIM [Concomitant]
     Active Substance: SULFAMETHOXAZOLE\TRIMETHOPRIM
     Dosage: ONE TABLET 3 TIMES WEEKLY
  34. RITUXAN [Suspect]
     Active Substance: RITUXIMAB
     Indication: VASCULITIS
     Dosage: PREVIOUS RITUXAN INFUSION: 16/JUL/2019
     Route: 042
     Dates: start: 20180508
  35. LASIX [Concomitant]
     Active Substance: FUROSEMIDE
     Dosage: 3 DAYS A WEEK
     Route: 048
  36. GABAPENTIN. [Concomitant]
     Active Substance: GABAPENTIN
     Route: 048
  37. LANTUS [Concomitant]
     Active Substance: INSULIN GLARGINE
     Dosage: 36 UNITS EVERY EVENING
     Route: 058
  38. ATORVASTATIN [Concomitant]
     Active Substance: ATORVASTATIN
     Route: 048
  39. FUROSEMIDE. [Concomitant]
     Active Substance: FUROSEMIDE
  40. ATROVENT [Concomitant]
     Active Substance: IPRATROPIUM BROMIDE

REACTIONS (34)
  - Cushingoid [Unknown]
  - Blood osmolarity decreased [Unknown]
  - Blood pressure systolic increased [Unknown]
  - Red blood cell count increased [Unknown]
  - Protein total increased [Unknown]
  - Blood pressure diastolic abnormal [Unknown]
  - Vasculitis [Unknown]
  - Hypoglycaemia [Recovering/Resolving]
  - Blood creatinine increased [Unknown]
  - Oedema [Unknown]
  - Arthralgia [Unknown]
  - Musculoskeletal stiffness [Unknown]
  - Neutrophil count increased [Unknown]
  - Blood glucose increased [Unknown]
  - Dehydration [Unknown]
  - Dyspnoea [Not Recovered/Not Resolved]
  - Red cell distribution width increased [Unknown]
  - Product use in unapproved indication [Unknown]
  - Off label use [Unknown]
  - Granulomatosis with polyangiitis [Not Recovered/Not Resolved]
  - Renal impairment [Unknown]
  - White blood cell count increased [Unknown]
  - Acute kidney injury [Recovering/Resolving]
  - Contusion [Not Recovered/Not Resolved]
  - Vitreous detachment [Unknown]
  - Contusion [Unknown]
  - Blood albumin decreased [Not Recovered/Not Resolved]
  - Mean cell haemoglobin concentration decreased [Unknown]
  - Mean cell volume decreased [Unknown]
  - Monocyte count increased [Unknown]
  - Weight increased [Unknown]
  - Proteinuria [Not Recovered/Not Resolved]
  - Episcleritis [Unknown]
  - Eosinophil count increased [Unknown]

NARRATIVE: CASE EVENT DATE: 201801
